FAERS Safety Report 4271219-8 (Version None)
Quarter: 2004Q1

REPORT INFORMATION
  Report Type: 
  Country: None (occurrence: None)
  Receive Date: 20040115
  Receipt Date: 20040115
  Transmission Date: 20041129
  Serious: Yes (Life-Threatening, Hospitalization)
  Sender: FDA-Public Use
  Company Number: None

PATIENT
  Age: 61 Year
  Sex: Female
  Weight: 63.5036 kg

DRUGS (6)
  1. ZELNORM [Suspect]
     Indication: IMPAIRED GASTRIC EMPTYING
     Dosage: 1/2 PO BID
     Route: 048
     Dates: start: 20030901, end: 20031214
  2. LANTUS [Concomitant]
  3. SEROQUEL [Concomitant]
  4. ACTONEL [Concomitant]
  5. TAMOFEN [Concomitant]
  6. SYNTHROID [Concomitant]

REACTIONS (5)
  - COMPARTMENT SYNDROME [None]
  - DIARRHOEA [None]
  - GASTROINTESTINAL DISORDER [None]
  - NAUSEA [None]
  - VOMITING [None]
